FAERS Safety Report 5093467-X (Version None)
Quarter: 2006Q3

REPORT INFORMATION
  Report Type: 
  Country: None (occurrence: None)
  Receive Date: 20060828
  Receipt Date: 20060816
  Transmission Date: 20061208
  Serious: Yes (Death, Hospitalization)
  Sender: FDA-Public Use
  Company Number: 2006-BP-09642RO

PATIENT
  Age: 41 Year
  Sex: Female

DRUGS (4)
  1. ZIDOVUDINE [Suspect]
     Indication: HIV INFECTION
     Dates: start: 20020701
  2. LAMIVUDINE [Suspect]
     Indication: HIV INFECTION
     Dates: start: 20020701
  3. ABACAVIR [Suspect]
     Indication: HIV INFECTION
     Dates: start: 20020701
  4. KALETRA [Suspect]
     Indication: HIV INFECTION

REACTIONS (13)
  - BLINDNESS [None]
  - CONVULSION [None]
  - CYTOMEGALOVIRUS CHORIORETINITIS [None]
  - CYTOMEGALOVIRUS COLITIS [None]
  - DEPRESSED LEVEL OF CONSCIOUSNESS [None]
  - DIARRHOEA HAEMORRHAGIC [None]
  - ENCEPHALITIS [None]
  - HYPONATRAEMIA [None]
  - IMMUNE RECONSTITUTION SYNDROME [None]
  - LUNG INFILTRATION [None]
  - MUCOUS STOOLS [None]
  - PNEUMOCYSTIS JIROVECI PNEUMONIA [None]
  - PNEUMONIA CYTOMEGALOVIRAL [None]
